FAERS Safety Report 7532353-X (Version None)
Quarter: 2011Q2

REPORT INFORMATION
  Report Type: 
  Country: None (occurrence: None)
  Receive Date: 20110608
  Receipt Date: 20110606
  Transmission Date: 20111010
  Serious: Yes (Other)
  Sender: FDA-Public Use
  Company Number: US-PFIZER INC-2011122971

PATIENT
  Sex: Female
  Weight: 83.9 kg

DRUGS (8)
  1. KLONOPIN [Concomitant]
     Indication: POST-TRAUMATIC STRESS DISORDER
  2. HYDROCODONE [Concomitant]
     Indication: PAIN
     Dosage: 5/500 MG, 2X/DAY
  3. CHANTIX [Suspect]
     Dosage: 0.5 MG, 2X/DAY
     Route: 048
     Dates: start: 20110101
  4. CHANTIX [Suspect]
     Indication: SMOKING CESSATION THERAPY
     Dosage: 0.5 MG, DAILY
     Route: 048
     Dates: start: 20110101, end: 20110101
  5. SEROQUEL [Concomitant]
     Indication: DEPRESSION
  6. KLONOPIN [Concomitant]
     Indication: ANXIETY
     Dosage: UNK
     Route: 048
  7. SEROQUEL [Concomitant]
     Indication: INSOMNIA
     Dosage: UNK
     Route: 048
  8. OPANA ER [Concomitant]
     Indication: PAIN
     Dosage: 10 MG, 2X/DAY
     Route: 048

REACTIONS (2)
  - HAEMATOCHEZIA [None]
  - MENORRHAGIA [None]
